FAERS Safety Report 15454748 (Version 1)
Quarter: 2018Q4

REPORT INFORMATION
  Report Type: Spontaneous
  Country: US (occurrence: US)
  Receive Date: 20181002
  Receipt Date: 20181002
  Transmission Date: 20190204
  Serious: Yes (Life-Threatening, Other)
  Sender: FDA-Public Use
  Company Number: US-BAYER-2018-180287

PATIENT
  Age: 89 Year
  Sex: Female

DRUGS (1)
  1. ACETYLSALICYLIC ACID (} 100 MG) [Suspect]
     Active Substance: ASPIRIN
     Dosage: 325 MG, QD

REACTIONS (6)
  - Shock haemorrhagic [None]
  - Gastric ulcer [None]
  - Gastric ulcer haemorrhage [None]
  - Splenic artery aneurysm [None]
  - Anaemia [None]
  - Arteritis [None]
